FAERS Safety Report 13065684 (Version 1)
Quarter: 2016Q4

REPORT INFORMATION
  Report Type: Report from Study
  Country: US (occurrence: US)
  Receive Date: 20161227
  Receipt Date: 20161227
  Transmission Date: 20170207
  Serious: Yes (Other)
  Sender: FDA-Public Use
  Company Number: US-SA-2016SA067876

PATIENT
  Age: 33 Year
  Sex: Female
  Weight: 71.67 kg

DRUGS (12)
  1. ALEMTUZUMAB [Suspect]
     Active Substance: ALEMTUZUMAB
     Indication: RELAPSING-REMITTING MULTIPLE SCLEROSIS
     Dosage: INTENDED DOSE: 120 MG
     Route: 065
     Dates: start: 20090323, end: 20090327
  2. LAPRAZOL [Concomitant]
     Active Substance: LANSOPRAZOLE
     Indication: INFERTILITY
  3. CALCIUM CARBONATE. [Concomitant]
     Active Substance: CALCIUM CARBONATE
     Indication: DYSPEPSIA
     Route: 048
     Dates: start: 1993
  4. ZOLPIDEM [Concomitant]
     Active Substance: ZOLPIDEM\ZOLPIDEM TARTRATE
     Indication: DRUG THERAPY
     Route: 048
     Dates: start: 20090630, end: 20160115
  5. IBUPROFEN. [Concomitant]
     Active Substance: IBUPROFEN
     Indication: DRUG THERAPY
     Route: 048
     Dates: start: 20140810, end: 20150115
  6. CALCIUM CARBONATE. [Concomitant]
     Active Substance: CALCIUM CARBONATE
     Indication: DRUG THERAPY
     Route: 048
     Dates: start: 1993
  7. ALEMTUZUMAB [Suspect]
     Active Substance: ALEMTUZUMAB
     Indication: RELAPSING-REMITTING MULTIPLE SCLEROSIS
     Dosage: INTENDED DOSE: 36 MG
     Route: 065
     Dates: start: 20100316, end: 20100318
  8. ACETAMINOPHEN. [Concomitant]
     Active Substance: ACETAMINOPHEN
     Indication: DRUG THERAPY
     Route: 048
     Dates: start: 20090322, end: 20160115
  9. FISH OIL [Concomitant]
     Active Substance: FISH OIL
     Indication: PROPHYLAXIS
     Route: 048
     Dates: start: 20110526, end: 20160115
  10. VITAMIN D [Concomitant]
     Active Substance: CHOLECALCIFEROL
     Indication: PROPHYLAXIS
     Route: 048
     Dates: start: 20130823
  11. PRENATAL VITAMINS [Concomitant]
     Active Substance: VITAMINS
     Indication: PROPHYLAXIS
     Route: 048
     Dates: start: 20160201
  12. PROVERA [Concomitant]
     Active Substance: MEDROXYPROGESTERONE ACETATE
     Indication: INFERTILITY

REACTIONS (1)
  - Pregnancy [Recovered/Resolved]

NARRATIVE: CASE EVENT DATE: 20160111
